FAERS Safety Report 8035500-9 (Version None)
Quarter: 2012Q1

REPORT INFORMATION
  Report Type: 
  Country: None (occurrence: None)
  Receive Date: 20120110
  Receipt Date: 20120110
  Transmission Date: 20120608
  Serious: No
  Sender: FDA-Public Use
  Company Number: None

PATIENT
  Age: 50 Year
  Sex: Male
  Weight: 70.9 kg

DRUGS (1)
  1. DOXYCYCLINE [Suspect]
     Indication: UPPER RESPIRATORY TRACT INFECTION
     Dosage: 100 MG BID PO
     Route: 048
     Dates: start: 20111108, end: 20111109

REACTIONS (1)
  - ANAPHYLACTIC REACTION [None]
